FAERS Safety Report 17193674 (Version 1)
Quarter: 2019Q4

REPORT INFORMATION
  Report Type: Spontaneous
  Country: PL (occurrence: PL)
  Receive Date: 20191223
  Receipt Date: 20191223
  Transmission Date: 20200122
  Serious: Yes (Life-Threatening, Hospitalization)
  Sender: FDA-Public Use
  Company Number: PL-GE HEALTHCARE LIFE SCIENCES-2019CSU006503

PATIENT

DRUGS (2)
  1. VISIPAQUE [Suspect]
     Active Substance: IODIXANOL
     Indication: ARTERIOGRAM CAROTID
     Dosage: 80 ML FOR 16 SECONDS AT 5 ML/SEC, ONCE
     Route: 042
     Dates: start: 20191213, end: 20191213
  2. VISIPAQUE [Suspect]
     Active Substance: IODIXANOL
     Indication: CAROTID ARTERIOSCLEROSIS

REACTIONS (5)
  - Loss of consciousness [Unknown]
  - Craniocerebral injury [Unknown]
  - Blood pressure decreased [Unknown]
  - Swelling face [Unknown]
  - Pulmonary oedema [Unknown]

NARRATIVE: CASE EVENT DATE: 20191213
